FAERS Safety Report 5010539-6 (Version None)
Quarter: 2006Q2

REPORT INFORMATION
  Report Type: 
  Country: None (occurrence: None)
  Receive Date: 20060523
  Receipt Date: 20060510
  Transmission Date: 20061013
  Serious: Yes (Hospitalization)
  Sender: FDA-Public Use
  Company Number: 2006PV013562

PATIENT
  Age: 72 Year
  Sex: Male
  Weight: 95.2554 kg

DRUGS (12)
  1. BYETTA [Suspect]
     Indication: DIABETES MELLITUS NON-INSULIN-DEPENDENT
     Dosage: SEE IMAGE, SC
     Route: 058
     Dates: start: 20060327, end: 20060301
  2. BYETTA [Suspect]
     Indication: DIABETES MELLITUS NON-INSULIN-DEPENDENT
     Dosage: SEE IMAGE, SC
     Route: 058
     Dates: start: 20060401
  3. MICRONASE [Concomitant]
  4. GLUCOPHAGE [Concomitant]
  5. ACTOS [Concomitant]
  6. PLAVIX [Concomitant]
  7. LISINOPRIL [Concomitant]
  8. LIPITOR [Concomitant]
  9. ASCORBIC ACID [Concomitant]
  10. FLAXSEED OIL [Concomitant]
  11. ASPIRIN [Concomitant]
  12. GLUCOSAMINE [Concomitant]

REACTIONS (5)
  - ABSCESS LIMB [None]
  - BLOOD GLUCOSE INCREASED [None]
  - LIMB INJURY [None]
  - LOCALISED INFECTION [None]
  - PAIN IN EXTREMITY [None]
